FAERS Safety Report 9218083 (Version 1)
Quarter: 2013Q2

REPORT INFORMATION
  Report Type: Report from Study
  Country: MX (occurrence: MX)
  Receive Date: 20130408
  Receipt Date: 20130408
  Transmission Date: 20140414
  Serious: Yes (Other)
  Sender: FDA-Public Use
  Company Number: MX-GLAXOSMITHKLINE-B0700483C

PATIENT
  Age: 33 Year
  Sex: Female

DRUGS (1)
  1. RETIGABINE [Suspect]
     Indication: PARTIAL SEIZURES
     Dosage: 350MG THREE TIMES PER DAY
     Route: 048
     Dates: start: 20070320

REACTIONS (2)
  - Macular pigmentation [Not Recovered/Not Resolved]
  - Scleral discolouration [Not Recovered/Not Resolved]
